FAERS Safety Report 7634225-9 (Version None)
Quarter: 2011Q3

REPORT INFORMATION
  Report Type: 
  Country: None (occurrence: None)
  Receive Date: 20110725
  Receipt Date: 20110719
  Transmission Date: 20111222
  Serious: Yes (Hospitalization)
  Sender: FDA-Public Use
  Company Number: JP-ABBOTT-10P-087-0625563-00

PATIENT
  Sex: Male

DRUGS (10)
  1. AMOXICILLIN TRIHYDRATE [Suspect]
     Indication: HELICOBACTER GASTRITIS
     Dosage: 250 MG 6C2X
     Route: 048
     Dates: start: 20100128, end: 20100131
  2. ALLEGRA [Concomitant]
     Indication: PRODUCT USED FOR UNKNOWN INDICATION
     Route: 048
  3. LANSOPRAZOLE [Suspect]
     Indication: HELICOBACTER GASTRITIS
     Dosage: 30 MG 2T2X
     Route: 048
     Dates: start: 20100128, end: 20100131
  4. AMOXICILLIN TRIHYDRATE [Suspect]
     Indication: DUODENAL ULCER
  5. NORVASC [Concomitant]
     Indication: PRODUCT USED FOR UNKNOWN INDICATION
     Route: 048
  6. LANSOPRAZOLE [Suspect]
     Indication: DUODENAL ULCER
  7. MAGMITT [Concomitant]
     Indication: CONSTIPATION
     Route: 048
     Dates: start: 20060915
  8. CLARITHROMYCIN [Suspect]
     Indication: DUODENAL ULCER
  9. CLARITHROMYCIN [Suspect]
     Indication: HELICOBACTER GASTRITIS
     Dosage: 200 MG 4T2X
     Route: 048
     Dates: start: 20100128, end: 20100131
  10. OLOPATADINE HCL [Concomitant]
     Indication: PRODUCT USED FOR UNKNOWN INDICATION
     Route: 048

REACTIONS (1)
  - INAPPROPRIATE ANTIDIURETIC HORMONE SECRETION [None]
